APPROVED DRUG PRODUCT: MIDODRINE HYDROCHLORIDE
Active Ingredient: MIDODRINE HYDROCHLORIDE
Strength: 2.5MG
Dosage Form/Route: TABLET;ORAL
Application: A207849 | Product #001 | TE Code: AB
Applicant: XIROMED PHARMA ESPANA SL
Approved: Oct 1, 2020 | RLD: No | RS: No | Type: RX